FAERS Safety Report 20003577 (Version 1)
Quarter: 2021Q4

REPORT INFORMATION
  Report Type: Spontaneous
  Country: US (occurrence: US)
  Receive Date: 20211028
  Receipt Date: 20211028
  Transmission Date: 20220303
  Serious: No
  Sender: FDA-Public Use
  Company Number: US-GLENMARK PHARMACEUTICALS-2021GMK066851

PATIENT

DRUGS (2)
  1. PRAMIPEXOLE DIHYDROCHLORIDE [Suspect]
     Active Substance: PRAMIPEXOLE DIHYDROCHLORIDE
     Indication: Anxiety
     Dosage: UNK
     Route: 065
  2. PRAMIPEXOLE DIHYDROCHLORIDE [Suspect]
     Active Substance: PRAMIPEXOLE DIHYDROCHLORIDE
     Indication: Anxiety
     Dosage: UNK
     Route: 065

REACTIONS (7)
  - Loss of personal independence in daily activities [Unknown]
  - Incorrect dose administered [Unknown]
  - Product appearance confusion [Unknown]
  - Wrong technique in product usage process [Unknown]
  - Restless legs syndrome [Unknown]
  - Drug effective for unapproved indication [Unknown]
  - Product quality issue [Unknown]
